FAERS Safety Report 8833128 (Version 1)
Quarter: 2012Q4

REPORT INFORMATION
  Report Type: 
  Country: ES (occurrence: ES)
  Receive Date: 20121010
  Receipt Date: 20121010
  Transmission Date: 20130627
  Serious: Yes (Other)
  Sender: FDA-Public Use
  Company Number: ES-BAYER-2012-096192

PATIENT
  Age: 41 Year
  Sex: Female

DRUGS (3)
  1. YAZ [Suspect]
     Dosage: 1 DF, QD
     Route: 048
     Dates: start: 20101218, end: 20120410
  2. PARACETAMOL [Suspect]
     Indication: PAIN
     Dosage: UNK
     Route: 048
     Dates: start: 20101218, end: 20120410
  3. ORLISTAT [Suspect]
     Route: 048
     Dates: start: 20100418, end: 20120410

REACTIONS (2)
  - Hepatitis [Recovered/Resolved]
  - Hyperbilirubinaemia [Recovered/Resolved]
